FAERS Safety Report 7038266-4 (Version None)
Quarter: 2010Q4

REPORT INFORMATION
  Report Type: 
  Country: None (occurrence: None)
  Receive Date: 20101011
  Receipt Date: 20091204
  Transmission Date: 20110411
  Serious: No
  Sender: FDA-Public Use
  Company Number: US-PFIZER INC-2009307770

PATIENT
  Sex: Female

DRUGS (2)
  1. NEURONTIN [Suspect]
     Indication: DEMENTIA ALZHEIMER'S TYPE
     Dosage: UNK
  2. NEURONTIN [Suspect]
     Indication: OFF LABEL USE

REACTIONS (1)
  - FRUSTRATION [None]
